FAERS Safety Report 7938005-6 (Version None)
Quarter: 2011Q4

REPORT INFORMATION
  Report Type: 
  Country: None (occurrence: None)
  Receive Date: 20111123
  Receipt Date: 20111117
  Transmission Date: 20120403
  Serious: Yes (Other)
  Sender: FDA-Public Use
  Company Number: US-ACTELION-A-US2010-35677

PATIENT

DRUGS (25)
  1. NOVOLIN N [Concomitant]
  2. CLOTRIMAZOLE [Concomitant]
  3. VIAGRA [Suspect]
  4. ALBUTEROL [Concomitant]
  5. DIGOXIN [Concomitant]
  6. HYDROCHLOROTHIAZIDE [Concomitant]
  7. GABAPENTIN [Concomitant]
  8. NITROGLYCERIN [Concomitant]
  9. ASCORBIC ACID [Concomitant]
  10. DULOXETINE HYDROCHLORIDE [Concomitant]
  11. SIMVASTATIN [Concomitant]
  12. ASPIRIN [Concomitant]
  13. PANTOPRAZOLE [Concomitant]
  14. METFORMIN [Concomitant]
  15. ARTIFICIAL TEARS [Concomitant]
  16. COENZYME Q10 [Concomitant]
  17. METOPROLOL TARTRATE [Concomitant]
  18. TRACLEER [Suspect]
     Indication: PULMONARY ARTERIAL HYPERTENSION
     Dosage: 62.5MG BID
     Route: 048
     Dates: start: 20100326
  19. COUMADIN [Concomitant]
  20. COLECALCIFEROL [Concomitant]
  21. EPIPEN [Concomitant]
  22. SYSTANE [Concomitant]
  23. TRAZODONE HCL [Concomitant]
  24. LISINOPRIL [Concomitant]
  25. LORAZEPAM [Concomitant]

REACTIONS (3)
  - ATRIAL FIBRILLATION [None]
  - DIZZINESS [None]
  - CHEST PAIN [None]
